FAERS Safety Report 4794264-2 (Version None)
Quarter: 2005Q4

REPORT INFORMATION
  Report Type: 
  Country: None (occurrence: None)
  Receive Date: 20051011
  Receipt Date: 20040228
  Transmission Date: 20060501
  Serious: Yes (Death, Life-Threatening, Hospitalization)
  Sender: FDA-Public Use
  Company Number: GH-GLAXOSMITHKLINE-B0325461A

PATIENT
  Age: 14 Year
  Sex: Female

DRUGS (2)
  1. ALBENDAZOLE [Suspect]
     Dosage: 1TAB PER DAY
     Route: 065
     Dates: start: 20040206
  2. IVERMECTIN [Suspect]
     Dosage: 4TAB PER DAY
     Dates: start: 20050206

REACTIONS (11)
  - JAUNDICE [None]
  - MOUTH ULCERATION [None]
  - OLIGURIA [None]
  - PAIN [None]
  - PYREXIA [None]
  - RASH [None]
  - RASH PRURITIC [None]
  - RENAL FAILURE ACUTE [None]
  - SEPSIS [None]
  - STEVENS-JOHNSON SYNDROME [None]
  - SWELLING FACE [None]
